APPROVED DRUG PRODUCT: SULFANILAMIDE
Active Ingredient: SULFANILAMIDE
Strength: 15%
Dosage Form/Route: CREAM;VAGINAL
Application: A088718 | Product #001
Applicant: COSETTE PHARMACEUTICALS INC
Approved: Sep 19, 1985 | RLD: No | RS: No | Type: DISCN